FAERS Safety Report 19472087 (Version 2)
Quarter: 2021Q3

REPORT INFORMATION
  Report Type: Spontaneous
  Country: US (occurrence: US)
  Receive Date: 20210629
  Receipt Date: 20210819
  Transmission Date: 20211014
  Serious: No
  Sender: FDA-Public Use
  Company Number: US-GW PHARMA-202106USGW03056

PATIENT

DRUGS (4)
  1. SOLIFENACIN [Suspect]
     Active Substance: SOLIFENACIN
     Indication: PRODUCT USED FOR UNKNOWN INDICATION
     Dosage: UNK
     Route: 065
     Dates: start: 202102
  2. EPIDIOLEX [Suspect]
     Active Substance: CANNABIDIOL
     Indication: PARTIAL SEIZURES
     Dosage: 2.33 MG/KG/DAY, 100 MILLIGRAM, BID
     Route: 048
     Dates: start: 20210205
  3. EPIDIOLEX [Suspect]
     Active Substance: CANNABIDIOL
     Indication: EPILEPSY
  4. EPIDIOLEX [Suspect]
     Active Substance: CANNABIDIOL
     Indication: SIMPLE PARTIAL SEIZURES

REACTIONS (3)
  - Urticaria [Unknown]
  - Product use in unapproved indication [Unknown]
  - Pruritus [Unknown]

NARRATIVE: CASE EVENT DATE: 2021
